FAERS Safety Report 4558062-7 (Version None)
Quarter: 2005Q1

REPORT INFORMATION
  Report Type: 
  Country: None (occurrence: None)
  Receive Date: 20050121
  Receipt Date: 20040803
  Transmission Date: 20050727
  Serious: No
  Sender: FDA-Public Use
  Company Number: US-BRISTOL-MYERS SQUIBB COMPANY-12660643

PATIENT
  Age: 41 Year
  Sex: Female
  Weight: 75 kg

DRUGS (3)
  1. SERZONE [Suspect]
     Indication: DEPRESSION
     Dosage: WEANING OFF, DECREASE DOSE BY 100 MG EVERY TWO WEEKS.
     Route: 048
     Dates: start: 19950101, end: 20040731
  2. CELEXA [Concomitant]
  3. AMBIEN [Concomitant]

REACTIONS (1)
  - DRUG WITHDRAWAL SYNDROME [None]
